FAERS Safety Report 6303140-5 (Version None)
Quarter: 2009Q3

REPORT INFORMATION
  Report Type: 
  Country: None (occurrence: None)
  Receive Date: 20090810
  Receipt Date: 20090805
  Transmission Date: 20100115
  Serious: Yes (Hospitalization, Other)
  Sender: FDA-Public Use
  Company Number: ES-ROXANE LABORATORIES, INC.-2009-RO-00782RO

PATIENT
  Age: 50 Year
  Sex: Female

DRUGS (15)
  1. PREDNISONE TAB [Suspect]
     Indication: MYASTHENIA GRAVIS
  2. AZATHIOPRINE [Suspect]
     Indication: MYASTHENIA GRAVIS
     Dosage: 200 MG
  3. CYCLOPHOSPHAMIDE [Suspect]
     Indication: BREAST CANCER STAGE II
  4. CYCLOPHOSPHAMIDE [Suspect]
     Indication: BREAST CANCER STAGE I
  5. PYRIDOSTIGMINE BROMIDE [Suspect]
     Indication: MYASTHENIA GRAVIS
     Dosage: 180 MG
  6. FLUOROURACIL [Suspect]
     Indication: BREAST CANCER STAGE II
  7. FLUOROURACIL [Suspect]
     Indication: BREAST CANCER STAGE I
  8. 4-EPIRUBICIN [Suspect]
     Indication: BREAST CANCER STAGE II
  9. 4-EPIRUBICIN [Suspect]
     Indication: BREAST CANCER STAGE I
  10. TAMOXIFEN CITRATE [Suspect]
     Indication: HORMONE THERAPY
     Dosage: 20 MG
  11. IMIPENEM [Concomitant]
     Indication: EVIDENCE BASED TREATMENT
     Dosage: 3 G
     Route: 042
  12. VANCOMYCIN [Concomitant]
     Indication: EVIDENCE BASED TREATMENT
     Dosage: 2 G
  13. COTRIM [Concomitant]
     Indication: EVIDENCE BASED TREATMENT
  14. GANCICLOVIR [Concomitant]
     Indication: ANTIVIRAL TREATMENT
     Route: 042
  15. VALGANCICLOVIR HCL [Concomitant]
     Indication: ANTIVIRAL TREATMENT
     Dosage: 1800 MG
     Route: 048

REACTIONS (6)
  - CHORIORETINITIS [None]
  - CUSHINGOID [None]
  - DISSEMINATED CYTOMEGALOVIRAL INFECTION [None]
  - EYELID PTOSIS [None]
  - HEPATITIS A [None]
  - PNEUMONITIS [None]
